FAERS Safety Report 21843582 (Version 9)
Quarter: 2024Q4

REPORT INFORMATION
  Report Type: Spontaneous
  Country: US (occurrence: US)
  Receive Date: 20230110
  Receipt Date: 20241111
  Transmission Date: 20250114
  Serious: No
  Sender: PFIZER
  Company Number: US-PFIZER INC-PV202300001588

PATIENT
  Age: 47 Year
  Sex: Male

DRUGS (15)
  1. IBRANCE [Suspect]
     Active Substance: PALBOCICLIB
     Indication: Breast cancer female
     Dosage: 125 MG, CYCLIC (1 TABLET BY MOUTH DAILY FOR 21 DAYS ON THEN 7 DAYS OFF)
     Route: 048
     Dates: start: 20221228
  2. IBRANCE [Suspect]
     Active Substance: PALBOCICLIB
     Dosage: 125 MG, CYCLIC (1 TABLET BY MOUTH DAILY FOR 21 DAYS ON THEN 7 DAYS OFF)
     Route: 048
     Dates: start: 20221231
  3. AMLODIPINE [Concomitant]
     Active Substance: AMLODIPINE BESYLATE
     Dosage: 10 MG
  4. ASCORBIC ACID [Concomitant]
     Active Substance: ASCORBIC ACID
     Dosage: UNK, POW
  5. CETIRIZINE [Concomitant]
     Active Substance: CETIRIZINE HYDROCHLORIDE
     Dosage: 10 MG
  6. CYANOCOBALAMIN [Concomitant]
     Active Substance: CYANOCOBALAMIN
     Dosage: UNK, CRY
  7. ELIQUIS [Concomitant]
     Active Substance: APIXABAN
     Dosage: 5 MG
  8. FERROUS SULFATE [Concomitant]
     Active Substance: FERROUS SULFATE
     Dosage: 325 MG
  9. FLONASE ALLERGY RELIEF [Concomitant]
     Active Substance: FLUTICASONE PROPIONATE
     Dosage: 50 UG
  10. FULVESTRANT [Concomitant]
     Active Substance: FULVESTRANT
     Dosage: 250/5 ML
  11. HYDROCHLOROTHIAZIDE [Concomitant]
     Active Substance: HYDROCHLOROTHIAZIDE
     Dosage: 25 MG
  12. LOSARTAN POTASSIUM [Concomitant]
     Active Substance: LOSARTAN POTASSIUM
     Dosage: 100 MG
  13. HERBALS\TURMERIC [Concomitant]
     Active Substance: HERBALS\TURMERIC
     Dosage: UNK, POW
  14. TYLENOL [Concomitant]
     Active Substance: ACETAMINOPHEN
     Dosage: 325 MG
  15. VENTOLIN HFA [Concomitant]
     Active Substance: ALBUTEROL SULFATE
     Dosage: UNK, AER

REACTIONS (4)
  - Neoplasm progression [Not Recovered/Not Resolved]
  - Lip blister [Recovered/Resolved]
  - Oral herpes [Unknown]
  - Diarrhoea [Not Recovered/Not Resolved]
